FAERS Safety Report 21775636 (Version 1)
Quarter: 2022Q4

REPORT INFORMATION
  Report Type: Spontaneous
  Country: US (occurrence: US)
  Receive Date: 20221226
  Receipt Date: 20221226
  Transmission Date: 20230113
  Serious: No
  Sender: FDA-Public Use
  Company Number: US-ABBVIE-4248601

PATIENT
  Sex: Male

DRUGS (1)
  1. IMBRUVICA [Suspect]
     Active Substance: IBRUTINIB
     Indication: Product used for unknown indication
     Dosage: STRENGTH- 140 MG TAKE 2 CAPSULES BY MOUTH ONCE DAILY. CAPSULES SHOULD BE TAKEN WITH A GLASS OF WA...
     Route: 048

REACTIONS (1)
  - COVID-19 [Recovering/Resolving]
